FAERS Safety Report 9180146 (Version 1)
Quarter: 2013Q1

REPORT INFORMATION
  Report Type: Spontaneous
  Country: US (occurrence: US)
  Receive Date: 20130321
  Receipt Date: 20130321
  Transmission Date: 20140127
  Serious: Yes (Other)
  Sender: FDA-Public Use
  Company Number: US-ABBOTT-13P-163-1064170-00

PATIENT
  Sex: 0

DRUGS (1)
  1. HUMIRA [Suspect]
     Indication: PRODUCT USED FOR UNKNOWN INDICATION

REACTIONS (5)
  - Drug-induced liver injury [Unknown]
  - Systemic lupus erythematosus [Unknown]
  - Psoriasis [Unknown]
  - Latent tuberculosis [Unknown]
  - Adenoidal disorder [Unknown]
